FAERS Safety Report 10341911 (Version 1)
Quarter: 2014Q3

REPORT INFORMATION
  Report Type: Spontaneous
  Country: IN (occurrence: IN)
  Receive Date: 20140725
  Receipt Date: 20140725
  Transmission Date: 20150326
  Serious: Yes (Death)
  Sender: FDA-Public Use
  Company Number: IN-009507513-1407IND011058

PATIENT
  Sex: Male
  Weight: 83 kg

DRUGS (1)
  1. JANUMET [Suspect]
     Active Substance: METFORMIN HYDROCHLORIDE\SITAGLIPTIN PHOSPHATE
     Dosage: 2/DAY
     Route: 048
     Dates: start: 20130518, end: 20140722

REACTIONS (1)
  - Chest pain [Fatal]
